FAERS Safety Report 16627740 (Version 2)
Quarter: 2019Q3

REPORT INFORMATION
  Report Type: Spontaneous
  Country: US (occurrence: US)
  Receive Date: 20190724
  Receipt Date: 20190731
  Transmission Date: 20191004
  Serious: No
  Sender: FDA-Public Use
  Company Number: US-JNJFOC-20190633054

PATIENT
  Sex: Female
  Weight: 52.21 kg

DRUGS (3)
  1. DURAGESIC [Suspect]
     Active Substance: FENTANYL
     Route: 062
  2. DURAGESIC [Suspect]
     Active Substance: FENTANYL
     Route: 062
  3. DURAGESIC [Suspect]
     Active Substance: FENTANYL
     Indication: PAIN
     Route: 062
     Dates: start: 2009

REACTIONS (4)
  - Pain [Not Recovered/Not Resolved]
  - Product quality issue [Unknown]
  - Therapy change [Unknown]
  - Product dose omission [Unknown]

NARRATIVE: CASE EVENT DATE: 1992
